FAERS Safety Report 5856272-X (Version None)
Quarter: 2008Q3

REPORT INFORMATION
  Report Type: 
  Country: None (occurrence: None)
  Receive Date: 20080825
  Receipt Date: 20080814
  Transmission Date: 20090109
  Serious: Yes (Hospitalization)
  Sender: FDA-Public Use
  Company Number: B0532008A

PATIENT
  Age: 74 Year
  Sex: Male
  Weight: 62 kg

DRUGS (9)
  1. ARIXTRA [Suspect]
     Route: 058
     Dates: start: 20080308, end: 20080310
  2. AUGMENTIN '125' [Concomitant]
  3. UMULINE [Concomitant]
     Route: 065
  4. DETENSIEL [Concomitant]
     Route: 065
  5. BRICANYL [Concomitant]
     Route: 065
  6. ATROVENT [Concomitant]
     Route: 065
  7. NEXIUM [Concomitant]
     Route: 065
  8. LASIX [Concomitant]
     Route: 065
  9. DOBUTAMINE HCL [Concomitant]
     Route: 065

REACTIONS (2)
  - COAGULATION TIME PROLONGED [None]
  - HAEMOPTYSIS [None]
